FAERS Safety Report 15463630 (Version 2)
Quarter: 2018Q4

REPORT INFORMATION
  Report Type: Spontaneous
  Country: US (occurrence: US)
  Receive Date: 20181004
  Receipt Date: 20181008
  Transmission Date: 20190204
  Serious: Yes (Death, Hospitalization)
  Sender: FDA-Public Use
  Company Number: US-ROCHE-2191763

PATIENT
  Age: 56 Year
  Sex: Female
  Weight: 112.82 kg

DRUGS (30)
  1. OCREVUS [Suspect]
     Active Substance: OCRELIZUMAB
     Indication: MULTIPLE SCLEROSIS
     Dosage: NEXT DOSES RECEIVED ON: 06/SEP/2017 AND 06/MAR/2018
     Route: 065
     Dates: start: 20170823
  2. COMBIVENT [Concomitant]
     Active Substance: ALBUTEROL SULFATE\IPRATROPIUM BROMIDE
     Indication: WHEEZING
     Dosage: 100-20 MCG/PUFF, 1 PUFF EVERY 6 HOURS AS NEEDED
     Route: 048
  3. COMBIVENT [Concomitant]
     Active Substance: ALBUTEROL SULFATE\IPRATROPIUM BROMIDE
     Indication: DYSPNOEA
  4. MYCOSTATIN [Concomitant]
     Active Substance: NYSTATIN
     Dosage: POWDER
     Route: 065
  5. MAALOX ANTACID [Concomitant]
     Active Substance: ALUMINUM HYDROXIDE\DIMETHICONE\MAGNESIUM HYDROXIDE
     Indication: DYSPEPSIA
     Dosage: 200-20 MG/5 ML
     Route: 048
  6. TUMS [Concomitant]
     Active Substance: CALCIUM CARBONATE
     Indication: DYSPEPSIA
     Dosage: 1-2 TABLETS BY MOUTH 3 TIMES DAILY AS NEEDED
     Route: 048
  7. LOPERAMIDE HCL [Concomitant]
     Active Substance: LOPERAMIDE HYDROCHLORIDE
     Dosage: GIVE 30 ML BY MOUTH PRN FOR 1ST LOOSE STOOL
     Route: 065
  8. LOPERAMIDE HCL [Concomitant]
     Active Substance: LOPERAMIDE HYDROCHLORIDE
     Dosage: SUBSEQUENT STOOLS, GIVE 15 ML BY MOUTH
     Route: 065
  9. NICODERM CQ [Concomitant]
     Active Substance: NICOTINE
     Dosage: 1 PATCH ONTO THE SKIN DAILY AS NEEDED FOR NICOTINE CRAVING
     Route: 065
  10. VITAMIN D3 [Concomitant]
     Active Substance: CHOLECALCIFEROL
     Dosage: 2000 UNITS BY MOUTH DAILY
     Route: 048
  11. SINEQUAN [Concomitant]
     Active Substance: DOXEPIN HYDROCHLORIDE
     Indication: ANXIETY
     Route: 048
  12. LEVOTHYROXINE. [Concomitant]
     Active Substance: LEVOTHYROXINE
     Dosage: EVERY MORNING, BEFORE BREAKFAST
     Route: 048
  13. DITROPAN XL [Concomitant]
     Active Substance: OXYBUTYNIN CHLORIDE
     Route: 048
  14. ZANTAC [Concomitant]
     Active Substance: RANITIDINE HYDROCHLORIDE
     Route: 048
  15. LUNESTA [Concomitant]
     Active Substance: ESZOPICLONE
     Dosage: NIGHTLY AS NEEDED
     Route: 048
  16. VISTARIL [Concomitant]
     Active Substance: HYDROXYZINE PAMOATE
     Dosage: NIGHTLY
     Route: 048
  17. COMBIVENT [Concomitant]
     Active Substance: ALBUTEROL SULFATE\IPRATROPIUM BROMIDE
     Indication: DYSPNOEA
  18. LIORESAL [Concomitant]
     Active Substance: BACLOFEN
     Dosage: 2 TABLET 3 TIMES A DAY
     Route: 048
  19. WELLBUTRIN [Concomitant]
     Active Substance: BUPROPION HYDROCHLORIDE
     Route: 048
  20. LOPERAMIDE HCL [Concomitant]
     Active Substance: LOPERAMIDE HYDROCHLORIDE
     Indication: DIARRHOEA
     Dosage: 1 MG/7.5 ML SUSP: TAKE 15-30 ML BY MOUTH AS NEEDED.
     Route: 048
  21. ATIVAN [Concomitant]
     Active Substance: LORAZEPAM
     Indication: ANXIETY
     Route: 048
  22. HIPEREX [Concomitant]
     Route: 048
  23. MAXZIDE [Concomitant]
     Active Substance: HYDROCHLOROTHIAZIDE\TRIAMTERENE
     Dosage: 37.5-25MG: TAKE 0.5 TABLET ORAL DAILY
     Route: 048
  24. CYMBALTA [Concomitant]
     Active Substance: DULOXETINE HYDROCHLORIDE
     Route: 048
  25. DIFLUCAN [Concomitant]
     Active Substance: FLUCONAZOLE
     Route: 048
  26. ZOFRAN [Concomitant]
     Active Substance: ONDANSETRON HYDROCHLORIDE
     Indication: NAUSEA
     Route: 048
  27. KLOR-CON [Concomitant]
     Active Substance: POTASSIUM CHLORIDE
     Dosage: 2 TABLETS 2 TIMES DAILY
     Route: 048
  28. TYLENOL [Concomitant]
     Active Substance: ACETAMINOPHEN
     Indication: PAIN
     Route: 048
  29. COLACE [Concomitant]
     Active Substance: DOCUSATE SODIUM
     Route: 048
  30. OXY IR [Concomitant]
     Active Substance: OXYCODONE HYDROCHLORIDE
     Indication: PAIN
     Dosage: AS NEEDED
     Route: 048

REACTIONS (9)
  - Encephalopathy [Unknown]
  - Metabolic acidosis [Unknown]
  - Aspiration [Fatal]
  - Liver function test abnormal [Unknown]
  - Urinary tract infection [Unknown]
  - Septic shock [Fatal]
  - Urosepsis [Unknown]
  - Infection [Unknown]
  - Hydronephrosis [Unknown]

NARRATIVE: CASE EVENT DATE: 20180719
